FAERS Safety Report 6075753-X (Version None)
Quarter: 2009Q1

REPORT INFORMATION
  Report Type: 
  Country: None (occurrence: None)
  Receive Date: 20090212
  Receipt Date: 20090206
  Transmission Date: 20090719
  Serious: Yes (Other)
  Sender: FDA-Public Use
  Company Number: GB-AMGEN-UK331062

PATIENT
  Sex: Female

DRUGS (7)
  1. NEUPOGEN [Suspect]
     Indication: CHEMOTHERAPY
     Route: 058
     Dates: start: 20090123, end: 20090125
  2. FLUOROURACIL [Concomitant]
     Route: 065
  3. CYCLOPHOSPHAMIDE [Concomitant]
     Route: 065
  4. EPIRUBICIN [Concomitant]
     Route: 065
  5. APREPITANT [Concomitant]
     Route: 065
  6. IBUPROFEN TABLETS [Concomitant]
     Route: 065
  7. ACETAMINOPHEN W/ CODEINE [Concomitant]
     Route: 065

REACTIONS (2)
  - ANAPHYLACTIC REACTION [None]
  - DIARRHOEA [None]
